FAERS Safety Report 16424518 (Version 1)
Quarter: 2019Q2

REPORT INFORMATION
  Report Type: Spontaneous
  Country: LV (occurrence: LV)
  Receive Date: 20190613
  Receipt Date: 20190613
  Transmission Date: 20190711
  Serious: Yes (Hospitalization)
  Sender: FDA-Public Use
  Company Number: LV-B.I. PHARMACEUTICALS,INC./RIDGEFIELD-2019-BI-024711

PATIENT
  Age: 59 Year
  Sex: Female
  Weight: 72 kg

DRUGS (2)
  1. DICLOFENAC [Concomitant]
     Active Substance: DICLOFENAC
     Indication: BACK PAIN
     Route: 065
  2. OFEV [Suspect]
     Active Substance: NINTEDANIB
     Indication: IDIOPATHIC PULMONARY FIBROSIS
     Route: 048

REACTIONS (5)
  - Large intestine infection [Unknown]
  - Malnutrition [Unknown]
  - Anaemia [Recovered/Resolved]
  - Diarrhoea [Unknown]
  - Gastrointestinal haemorrhage [Recovered/Resolved]

NARRATIVE: CASE EVENT DATE: 201812
